FAERS Safety Report 14350006 (Version 6)
Quarter: 2018Q3

REPORT INFORMATION
  Report Type: Report from Study
  Country: US (occurrence: US)
  Receive Date: 20180104
  Receipt Date: 20180920
  Transmission Date: 20181010
  Serious: Yes (Hospitalization, Other)
  Sender: FDA-Public Use
  Company Number: US-GILEAD-2018-0313661

PATIENT
  Age: 69 Year
  Sex: Female

DRUGS (19)
  1. AMBRISENTAN [Suspect]
     Active Substance: AMBRISENTAN
     Indication: CONNECTIVE TISSUE DISORDER
  2. MIRTAZAPINE. [Concomitant]
     Active Substance: MIRTAZAPINE
  3. PANTOPRAZOLE [Concomitant]
     Active Substance: PANTOPRAZOLE
  4. COLCHICINE. [Concomitant]
     Active Substance: COLCHICINE
  5. TADALAFIL [Concomitant]
     Active Substance: TADALAFIL
  6. POTASSIUM CHLORIDE. [Concomitant]
     Active Substance: POTASSIUM CHLORIDE
  7. TYLENOL [Concomitant]
     Active Substance: ACETAMINOPHEN
  8. AMITIZA [Concomitant]
     Active Substance: LUBIPROSTONE
  9. ZADITOR [Concomitant]
     Active Substance: KETOTIFEN FUMARATE
  10. AMBRISENTAN [Suspect]
     Active Substance: AMBRISENTAN
     Indication: PULMONARY ARTERIAL HYPERTENSION
     Dosage: 10 MG, QD
     Route: 048
     Dates: start: 20130714
  11. METOCLOPRAMIDE. [Concomitant]
     Active Substance: METOCLOPRAMIDE
  12. BACLOFEN. [Concomitant]
     Active Substance: BACLOFEN
  13. MEGESTROL [Concomitant]
     Active Substance: MEGESTROL
  14. MINTOX [Concomitant]
     Active Substance: ALUMINUM HYDROXIDE\DIMETHICONE\MAGNESIUM HYDROXIDE
  15. PYRIDOSTIGMINE [Concomitant]
     Active Substance: PYRIDOSTIGMINE
  16. CITALOPRAM [Concomitant]
     Active Substance: CITALOPRAM HYDROBROMIDE
  17. OXYBUTYNIN. [Concomitant]
     Active Substance: OXYBUTYNIN CHLORIDE
  18. SUCRALFATE. [Concomitant]
     Active Substance: SUCRALFATE
  19. DOCUSATE SODIUM. [Concomitant]
     Active Substance: DOCUSATE SODIUM

REACTIONS (16)
  - Haematemesis [Recovered/Resolved]
  - Pyrexia [Unknown]
  - Oesophagitis ulcerative [Unknown]
  - Vomiting [Unknown]
  - Dysuria [Unknown]
  - Gastrointestinal haemorrhage [Recovered/Resolved]
  - Melaena [Unknown]
  - Asthenia [Unknown]
  - Anaemia [Unknown]
  - Haemoglobin decreased [Recovering/Resolving]
  - Palpitations [Unknown]
  - Oesophageal ulcer [Unknown]
  - Gastrointestinal ulcer [Recovered/Resolved]
  - Urinary tract infection [Unknown]
  - Dizziness [Unknown]
  - Dizziness [Unknown]

NARRATIVE: CASE EVENT DATE: 20180616
